FAERS Safety Report 16994710 (Version 1)
Quarter: 2019Q4

REPORT INFORMATION
  Report Type: Spontaneous
  Country: US (occurrence: US)
  Receive Date: 20191105
  Receipt Date: 20191105
  Transmission Date: 20200122
  Serious: Yes (Other)
  Sender: FDA-Public Use
  Company Number: US-TOLMAR, INC.-19US000779

PATIENT
  Age: 57 Year
  Sex: Female
  Weight: 53.52 kg

DRUGS (11)
  1. KETOCONAZOLE. [Suspect]
     Active Substance: KETOCONAZOLE
     Indication: FUNGAL INFECTION
     Dosage: UNK, QD
     Route: 061
     Dates: start: 20181225, end: 20190925
  2. MELATONIN [Concomitant]
     Active Substance: MELATONIN
     Indication: PRODUCT USED FOR UNKNOWN INDICATION
  3. GABAPENTIN. [Concomitant]
     Active Substance: GABAPENTIN
     Indication: PRODUCT USED FOR UNKNOWN INDICATION
  4. CYCLOBENZAPRINE. [Concomitant]
     Active Substance: CYCLOBENZAPRINE
     Indication: PRODUCT USED FOR UNKNOWN INDICATION
  5. IBUPROFEN. [Concomitant]
     Active Substance: IBUPROFEN
     Indication: PRODUCT USED FOR UNKNOWN INDICATION
  6. SYNTHROID [Concomitant]
     Active Substance: LEVOTHYROXINE SODIUM
     Indication: PRODUCT USED FOR UNKNOWN INDICATION
  7. TRAZODONE [Concomitant]
     Active Substance: TRAZODONE HYDROCHLORIDE
     Indication: PRODUCT USED FOR UNKNOWN INDICATION
  8. ESSENTIAL OILS NOS [Concomitant]
     Indication: PRODUCT USED FOR UNKNOWN INDICATION
  9. TEA TREE [Concomitant]
     Active Substance: GLYCERIN
     Indication: PRODUCT USED FOR UNKNOWN INDICATION
  10. KETOCONAZOLE. [Suspect]
     Active Substance: KETOCONAZOLE
     Indication: INFECTION
     Dosage: 200 MILLIGRAM, QD
     Route: 048
     Dates: start: 20190118, end: 20190122
  11. SUBOXONE [Concomitant]
     Active Substance: BUPRENORPHINE HYDROCHLORIDE\NALOXONE HYDROCHLORIDE
     Indication: PRODUCT USED FOR UNKNOWN INDICATION

REACTIONS (29)
  - Loss of consciousness [Recovered/Resolved]
  - Oral disorder [Not Recovered/Not Resolved]
  - Productive cough [Not Recovered/Not Resolved]
  - Malaise [Not Recovered/Not Resolved]
  - Product use issue [Unknown]
  - Tremor [Unknown]
  - Chills [Unknown]
  - Dizziness [Unknown]
  - Dysphagia [Unknown]
  - Confusional state [Unknown]
  - Eye discharge [Unknown]
  - Insomnia [Unknown]
  - Dyspnoea [Unknown]
  - Fall [Recovered/Resolved]
  - Pulmonary mass [Not Recovered/Not Resolved]
  - Skin disorder [Not Recovered/Not Resolved]
  - Paranasal sinus hypersecretion [Unknown]
  - Heart rate increased [Unknown]
  - Drug ineffective [None]
  - Memory impairment [Unknown]
  - Nausea [Not Recovered/Not Resolved]
  - Eyelid disorder [Unknown]
  - Anorectal disorder [Unknown]
  - Pruritus [Unknown]
  - Feeling abnormal [Not Recovered/Not Resolved]
  - Eye disorder [Not Recovered/Not Resolved]
  - Weight decreased [Unknown]
  - Muscle spasms [Unknown]
  - Constipation [Unknown]

NARRATIVE: CASE EVENT DATE: 20181225
